FAERS Safety Report 6435930-2 (Version None)
Quarter: 2009Q4

REPORT INFORMATION
  Report Type: 
  Country: None (occurrence: None)
  Receive Date: 20091111
  Receipt Date: 20091104
  Transmission Date: 20100525
  Serious: Yes (Hospitalization)
  Sender: FDA-Public Use
  Company Number: IT-ASTRAZENECA-2009SE24730

PATIENT
  Age: 32447 Day
  Sex: Female

DRUGS (6)
  1. SEROQUEL [Suspect]
     Indication: DEPRESSION
     Route: 048
  2. CYMBALTA [Suspect]
     Indication: DEPRESSION
     Route: 048
  3. LEVOPRAID [Concomitant]
     Route: 048
  4. LANSOX [Concomitant]
     Route: 048
  5. TALOFEN [Concomitant]
     Route: 048
  6. ASPIRIN [Concomitant]
     Route: 048

REACTIONS (1)
  - SUPRAVENTRICULAR TACHYCARDIA [None]
